FAERS Safety Report 24114272 (Version 2)
Quarter: 2024Q3

REPORT INFORMATION
  Report Type: Spontaneous
  Country: US (occurrence: US)
  Receive Date: 20240720
  Receipt Date: 20240820
  Transmission Date: 20241017
  Serious: Yes (Hospitalization, Other)
  Sender: AUROBINDO
  Company Number: US-MLMSERVICE-20240710-PI120627-00177-1

PATIENT
  Age: 16 Year
  Sex: Female

DRUGS (10)
  1. HYDROCORTISONE [Interacting]
     Active Substance: HYDROCORTISONE\HYDROCORTISONE ACETATE
     Indication: Steroid therapy
     Dosage: 15 MILLIGRAM, 3 TIMES A DAY, YELLOW ZONE
     Route: 065
  2. HYDROCORTISONE [Interacting]
     Active Substance: HYDROCORTISONE\HYDROCORTISONE ACETATE
     Dosage: 100 MILLIGRAM, 3 TIMES A DAY, RED ZONE
     Route: 042
  3. HYDROCORTISONE [Interacting]
     Active Substance: HYDROCORTISONE\HYDROCORTISONE ACETATE
     Dosage: 5 MILLIGRAM, 3 TIMES A DAY, GREEN ZONE
     Route: 065
  4. HYDROCORTISONE [Interacting]
     Active Substance: HYDROCORTISONE\HYDROCORTISONE ACETATE
     Dosage: 10 MILLIGRAM, 3 TIMES A DAY
     Route: 065
  5. HYDROCORTISONE [Interacting]
     Active Substance: HYDROCORTISONE\HYDROCORTISONE ACETATE
     Dosage: 30 MILLIGRAM, 3 TIMES A DAY
     Route: 065
  6. MITOTANE [Interacting]
     Active Substance: MITOTANE
     Indication: Adrenocortical carcinoma
     Dosage: UNK
     Route: 065
  7. FLUDROCORTISONE [Interacting]
     Active Substance: FLUDROCORTISONE
     Indication: Steroid therapy
     Dosage: 0.1 MILLIGRAM, ONCE A DAY
     Route: 065
  8. ETOPOSIDE [Concomitant]
     Active Substance: ETOPOSIDE
     Indication: Adrenocortical carcinoma
     Dosage: UNK
     Route: 065
  9. DOXORUBICIN [Concomitant]
     Active Substance: DOXORUBICIN
     Indication: Adrenocortical carcinoma
     Dosage: UNK
     Route: 065
  10. CISPLATIN [Concomitant]
     Active Substance: CISPLATIN
     Indication: Adrenocortical carcinoma
     Dosage: UNK
     Route: 065

REACTIONS (3)
  - Adrenocortical insufficiency acute [Unknown]
  - Hypotension [Unknown]
  - Drug interaction [Unknown]
